FAERS Safety Report 16599688 (Version 2)
Quarter: 2019Q3

REPORT INFORMATION
  Report Type: Spontaneous
  Country: FR (occurrence: FR)
  Receive Date: 20190720
  Receipt Date: 20190921
  Transmission Date: 20191004
  Serious: Yes (Congenital Anomaly, Other)
  Sender: FDA-Public Use
  Company Number: FR-AUROBINDO-AUR-APL-2019-041367

PATIENT
  Age: 19 Week
  Sex: Male

DRUGS (4)
  1. OROZAMUDOL [Suspect]
     Active Substance: TRAMADOL
     Indication: SINUSITIS
     Dosage: 2 DOSAGE FORM, ONCE A DAY
     Route: 064
     Dates: start: 201903, end: 201903
  2. AMOXICILLIN. [Suspect]
     Active Substance: AMOXICILLIN
     Indication: INFLUENZA
     Dosage: 3 GRAM, ONCE A DAY
     Route: 064
     Dates: start: 20190322, end: 20190329
  3. TAMIFLU [Suspect]
     Active Substance: OSELTAMIVIR PHOSPHATE
     Indication: INFLUENZA
     Dosage: UNK
     Route: 064
     Dates: start: 20190320, end: 20190325
  4. ASPEGIC (ACETYLSALICYLATE LYSINE) [Suspect]
     Active Substance: ASPIRIN DL-LYSINE
     Indication: INFLUENZA
     Dosage: 2 DOSAGE FORM, ONCE A DAY
     Route: 064
     Dates: start: 20190321, end: 20190322

REACTIONS (2)
  - Cleft lip and palate [Not Recovered/Not Resolved]
  - Congenital heart valve disorder [Not Recovered/Not Resolved]

NARRATIVE: CASE EVENT DATE: 20190519
